FAERS Safety Report 21369036 (Version 2)
Quarter: 2022Q3

REPORT INFORMATION
  Report Type: Spontaneous
  Country: US (occurrence: US)
  Receive Date: 20220923
  Receipt Date: 20220927
  Transmission Date: 20221026
  Serious: Yes (Other)
  Sender: FDA-Public Use
  Company Number: US-PFIZER INC-PV202200067062

PATIENT
  Age: 50 Year
  Sex: Female

DRUGS (2)
  1. ENBREL [Suspect]
     Active Substance: ETANERCEPT
     Indication: Undifferentiated spondyloarthritis
     Dosage: UNK
     Route: 058
     Dates: start: 2003, end: 2007
  2. SULFASALAZINE [Concomitant]
     Active Substance: SULFASALAZINE
     Indication: Undifferentiated spondyloarthritis
     Dosage: 3 G, DAILY

REACTIONS (1)
  - Therapeutic product effect incomplete [Unknown]
